FAERS Safety Report 15810620 (Version 1)
Quarter: 2019Q1

REPORT INFORMATION
  Report Type: Spontaneous
  Country: US (occurrence: US)
  Receive Date: 20190111
  Receipt Date: 20190111
  Transmission Date: 20190417
  Serious: Yes (Hospitalization)
  Sender: FDA-Public Use
  Company Number: US-ROCHE-2185210

PATIENT
  Age: 63 Year
  Sex: Male
  Weight: 90.35 kg

DRUGS (1)
  1. RITUXAN HYCELA [Suspect]
     Active Substance: HYALURONIDASE (HUMAN RECOMBINANT)\RITUXIMAB
     Indication: LYMPHOMA
     Dosage: EVERY MONTH;ONGOING: YES
     Route: 042
     Dates: start: 20180710

REACTIONS (14)
  - Flushing [Unknown]
  - Hypophagia [Unknown]
  - Eye irritation [Unknown]
  - Vision blurred [Unknown]
  - Abdominal pain upper [Not Recovered/Not Resolved]
  - Rash [Unknown]
  - Ocular hyperaemia [Not Recovered/Not Resolved]
  - Chills [Recovered/Resolved]
  - Cellulitis [Not Recovered/Not Resolved]
  - Generalised erythema [Unknown]
  - Feeling cold [Unknown]
  - Feeling abnormal [Unknown]
  - Pain of skin [Unknown]
  - Decreased appetite [Unknown]

NARRATIVE: CASE EVENT DATE: 20180713
